FAERS Safety Report 6131858-6 (Version None)
Quarter: 2009Q1

REPORT INFORMATION
  Report Type: 
  Country: None (occurrence: None)
  Receive Date: 20090323
  Receipt Date: 20090225
  Transmission Date: 20090719
  Serious: Yes (Hospitalization)
  Sender: FDA-Public Use
  Company Number: US025355

PATIENT
  Age: 64 Year
  Sex: Female
  Weight: 75 kg

DRUGS (5)
  1. TREANDA [Suspect]
     Indication: CHRONIC LYMPHOCYTIC LEUKAEMIA
     Dosage: 150 MG (150 MG, 1 IN 1 D), INTRAVENOUS
     Route: 042
     Dates: start: 20081210
  2. RITUXIMAB (RITUXIMAB) [Suspect]
     Indication: CHRONIC LYMPHOCYTIC LEUKAEMIA
     Dosage: (640 MG), INTRAVENOUS
     Route: 042
     Dates: start: 20081208
  3. LANTUS [Concomitant]
  4. APIDRA [Concomitant]
  5. CLONISTADA (CLONISTADA (CLONIDINE HYDROCHLORIDE) [Concomitant]

REACTIONS (8)
  - ABDOMINAL PAIN LOWER [None]
  - ABDOMINAL RIGIDITY [None]
  - ABSCESS DRAINAGE [None]
  - BLOOD CREATININE INCREASED [None]
  - CHOLELITHIASIS [None]
  - CONDITION AGGRAVATED [None]
  - DIVERTICULAR PERFORATION [None]
  - DIVERTICULITIS [None]
